FAERS Safety Report 10706729 (Version 1)
Quarter: 2015Q1

REPORT INFORMATION
  Report Type: Spontaneous
  Country: CA (occurrence: None)
  Receive Date: 20150109
  Receipt Date: 20150109
  Transmission Date: 20150721
  Serious: Yes (Disabling, Congenital Anomaly, Other)
  Sender: FDA-Public Use
  Company Number: None

PATIENT
  Age: 22 Year
  Sex: Female

DRUGS (1)
  1. FLOVENT HFA [Suspect]
     Active Substance: FLUTICASONE PROPIONATE
     Indication: ASTHMA
     Dosage: 2 PUFFS, TWICE DAILY, INHALATION?
     Route: 055
     Dates: start: 19970201, end: 20030601

REACTIONS (7)
  - Postpartum disorder [None]
  - Maternal drugs affecting foetus [None]
  - Anxiety [None]
  - Paranoia [None]
  - Visual impairment [None]
  - Panic attack [None]
  - Exposure during breast feeding [None]

NARRATIVE: CASE EVENT DATE: 19970201
